FAERS Safety Report 26011985 (Version 1)
Quarter: 2025Q4

REPORT INFORMATION
  Report Type: Report from Study
  Country: US (occurrence: US)
  Receive Date: 20251107
  Receipt Date: 20251107
  Transmission Date: 20260117
  Serious: Yes (Death)
  Sender: ABBVIE
  Company Number: US-ABBVIE-6536920

PATIENT
  Age: 84 Year
  Sex: Male

DRUGS (1)
  1. BOTOX [Suspect]
     Active Substance: ONABOTULINUMTOXINA
     Indication: Blepharospasm
     Dosage: TIME INTERVAL: AS NECESSARY: DOSE: 100 UNITS; FREQUENCY: EVERY 12 WEEKS
     Route: 030
     Dates: start: 202506, end: 202506

REACTIONS (1)
  - Death [Fatal]

NARRATIVE: CASE EVENT DATE: 20250101
